FAERS Safety Report 9427620 (Version 1)
Quarter: 2013Q3

REPORT INFORMATION
  Report Type: Report from Study
  Country: US (occurrence: US)
  Receive Date: 20130730
  Receipt Date: 20130730
  Transmission Date: 20140515
  Serious: No
  Sender: FDA-Public Use
  Company Number: US-ABBOTT-12P-163-0986687-00

PATIENT
  Age: 62 Year
  Sex: Female
  Weight: 83.54 kg

DRUGS (9)
  1. NIASPAN (COATED) [Suspect]
     Indication: LOW DENSITY LIPOPROTEIN INCREASED
     Dosage: AT NIGHT
     Dates: start: 201009
  2. SIMVASTATIN [Suspect]
     Indication: PRODUCT USED FOR UNKNOWN INDICATION
  3. LIPITOR [Suspect]
     Indication: PAIN
  4. LOSARTAN AND HYDROCHLOROTHIAZIDE [Suspect]
     Indication: BLOOD PRESSURE
     Dosage: 100/25MG
  5. LOSARTAN AND HYDROCHLOROTHIAZIDE [Suspect]
     Dosage: 1/2 DOSAGE OF 100/25MG
  6. ASPIRIN [Concomitant]
     Indication: PRODUCT USED FOR UNKNOWN INDICATION
  7. AMLODIPINE [Concomitant]
     Indication: PRODUCT USED FOR UNKNOWN INDICATION
  8. LANSOPRAZOLE [Concomitant]
     Indication: PRODUCT USED FOR UNKNOWN INDICATION
  9. MONTELUKAST [Concomitant]
     Indication: PRODUCT USED FOR UNKNOWN INDICATION

REACTIONS (12)
  - Gait disturbance [Not Recovered/Not Resolved]
  - Feeling abnormal [Unknown]
  - Muscular weakness [Unknown]
  - Pain in extremity [Unknown]
  - Back pain [Recovered/Resolved]
  - Flushing [Recovered/Resolved]
  - Vitamin D decreased [Unknown]
  - Type 2 diabetes mellitus [Recovered/Resolved]
  - Dizziness [Recovered/Resolved]
  - Glucose tolerance impaired [Unknown]
  - Blood pressure decreased [Recovered/Resolved]
  - Respiratory disorder [Not Recovered/Not Resolved]
